FAERS Safety Report 8452910-6 (Version None)
Quarter: 2012Q2

REPORT INFORMATION
  Report Type: 
  Country: None (occurrence: None)
  Receive Date: 20120620
  Receipt Date: 20120406
  Transmission Date: 20120825
  Serious: No
  Sender: FDA-Public Use
  Company Number: US-VERTEX PHARMACEUTICALS INC.-AE-2012-006339

PATIENT
  Sex: Male
  Weight: 81.72 kg

DRUGS (4)
  1. INCIVEK [Suspect]
     Route: 048
     Dates: end: 20120416
  2. PEGASYS [Concomitant]
     Indication: HEPATITIS C
     Dates: start: 20120322, end: 20120416
  3. RIBAVIRIN [Concomitant]
     Indication: HEPATITIS C
     Route: 048
     Dates: start: 20120322, end: 20120416
  4. INCIVEK [Suspect]
     Indication: HEPATITIS C
     Route: 048
     Dates: start: 20120323, end: 20120325

REACTIONS (6)
  - MALAISE [None]
  - PAIN [None]
  - PYREXIA [None]
  - CHILLS [None]
  - DIARRHOEA [None]
  - RASH GENERALISED [None]
